FAERS Safety Report 4835587-8 (Version None)
Quarter: 2005Q4

REPORT INFORMATION
  Report Type: 
  Country: None (occurrence: None)
  Receive Date: 20051121
  Receipt Date: 20051107
  Transmission Date: 20060501
  Serious: Yes (Other)
  Sender: FDA-Public Use
  Company Number: 27822

PATIENT
  Age: 88 Year
  Sex: Male

DRUGS (3)
  1. ALDARA [Suspect]
     Indication: BASAL CELL CARCINOMA
     Dosage: 1 IN 1 DAY(S), TOPICAL
     Route: 061
     Dates: start: 20041129, end: 20041205
  2. ALDARA [Suspect]
     Indication: BASAL CELL CARCINOMA
     Dosage: 1 IN 1 DAY(S), TOPICAL
     Route: 061
     Dates: start: 20041206, end: 20041216
  3. ALDARA [Suspect]
     Indication: BASAL CELL CARCINOMA
     Dosage: 1 IN 1 DAY(S), TOPICAL
     Route: 061
     Dates: start: 20041226, end: 20050126

REACTIONS (10)
  - APPLICATION SITE REACTION [None]
  - BALANCE DISORDER [None]
  - BLOOD IMMUNOGLOBULIN M INCREASED [None]
  - CONDITION AGGRAVATED [None]
  - DIFFICULTY IN WALKING [None]
  - DYSSTASIA [None]
  - GAIT DISTURBANCE [None]
  - IMMUNOGLOBULINS ABNORMAL [None]
  - NEUROPATHY [None]
  - SCAB [None]
